FAERS Safety Report 18164622 (Version 1)
Quarter: 2020Q3

REPORT INFORMATION
  Report Type: Report from Study
  Country: CM (occurrence: CI)
  Receive Date: 20200818
  Receipt Date: 20200818
  Transmission Date: 20201103
  Serious: Yes (Other)
  Sender: FDA-Public Use
  Company Number: CM-VIIV HEALTHCARE LIMITED-CI2020GSK163275

PATIENT
  Age: 53 Year
  Sex: Male

DRUGS (3)
  1. LAMIVUDINE. [Suspect]
     Active Substance: LAMIVUDINE
     Indication: HIV-2 INFECTION
     Dosage: UNK
  2. ZIDOVUDINE. [Suspect]
     Active Substance: ZIDOVUDINE
     Indication: HIV-2 INFECTION
     Dosage: UNK
  3. LOPINAVIR+RITONAVIR [Suspect]
     Active Substance: LOPINAVIR\RITONAVIR
     Indication: HIV-2 INFECTION
     Dosage: UNK

REACTIONS (3)
  - Viral mutation identified [Unknown]
  - Virologic failure [Unknown]
  - Pathogen resistance [Unknown]
